FAERS Safety Report 23333181 (Version 1)
Quarter: 2023Q4

REPORT INFORMATION
  Report Type: Spontaneous
  Country: US (occurrence: US)
  Receive Date: 20231222
  Receipt Date: 20231222
  Transmission Date: 20240109
  Serious: Yes (Hospitalization, Other)
  Sender: FDA-Public Use
  Company Number: US-009507513-2312USA006788

PATIENT
  Sex: Female

DRUGS (1)
  1. KEYTRUDA [Suspect]
     Active Substance: PEMBROLIZUMAB
     Indication: Breast cancer
     Dosage: UNK
     Route: 042
     Dates: end: 2022

REACTIONS (9)
  - Respiratory failure [Unknown]
  - Mastectomy [Unknown]
  - Systemic lupus erythematosus [Unknown]
  - Immune system disorder [Unknown]
  - Heart rate abnormal [Unknown]
  - Lung disorder [Unknown]
  - Bone pain [Unknown]
  - Feeling abnormal [Unknown]
  - Fatigue [Unknown]
